FAERS Safety Report 8437349-1 (Version None)
Quarter: 2012Q2

REPORT INFORMATION
  Report Type: 
  Country: None (occurrence: None)
  Receive Date: 20120614
  Receipt Date: 20120312
  Transmission Date: 20120825
  Serious: No
  Sender: FDA-Public Use
  Company Number: US-AMGEN-KDL442533

PATIENT
  Age: 79 Year
  Sex: Female

DRUGS (5)
  1. OXYGEN [Concomitant]
     Dosage: UNK
  2. PROLIA [Suspect]
     Indication: OSTEOPOROSIS POSTMENOPAUSAL
     Dosage: 60 MG, Q6MO
     Dates: start: 20100920
  3. VERAPAMIL [Concomitant]
     Dosage: UNK
  4. UNSPECIFIED DIURETIC [Concomitant]
     Dosage: UNK
  5. UNSPECIFIED ANTINEOPLASTIC AGENT [Concomitant]
     Dosage: UNK
     Route: 048

REACTIONS (3)
  - HEADACHE [None]
  - CHEST PAIN [None]
  - BACK PAIN [None]
